FAERS Safety Report 11608298 (Version 2)
Quarter: 2015Q4

REPORT INFORMATION
  Report Type: Spontaneous
  Country: PL (occurrence: PL)
  Receive Date: 20151007
  Receipt Date: 20151016
  Transmission Date: 20160304
  Serious: Yes (Other)
  Sender: FDA-Public Use
  Company Number: PL-REGENERON PHARMACEUTICALS, INC.-2015-12695

PATIENT

DRUGS (3)
  1. AFLIBERCEPT IAI [Suspect]
     Active Substance: AFLIBERCEPT
     Indication: AGE-RELATED MACULAR DEGENERATION
     Dosage: 2 MG, Q4WK, SECOND INJECTION
     Route: 031
  2. AFLIBERCEPT IAI [Suspect]
     Active Substance: AFLIBERCEPT
     Dosage: 2 MG, Q4WK, THIRD INJECTION
     Route: 031
  3. AFLIBERCEPT IAI [Suspect]
     Active Substance: AFLIBERCEPT
     Indication: CHOROIDAL NEOVASCULARISATION
     Dosage: 2 MG, Q4WK, FIRST INJECTION
     Route: 031

REACTIONS (2)
  - Drug ineffective [Unknown]
  - Subretinal fluid [Unknown]
